FAERS Safety Report 24927184 (Version 1)
Quarter: 2025Q1

REPORT INFORMATION
  Report Type: Spontaneous
  Country: CA (occurrence: None)
  Receive Date: 20250205
  Receipt Date: 20250205
  Transmission Date: 20250408
  Serious: Yes (Hospitalization, Other)
  Sender: UNICHEM
  Company Number: CA-Unichem Pharmaceuticals (USA) Inc-UCM202502-000163

PATIENT
  Age: 61 Year
  Sex: Female

DRUGS (5)
  1. CARBAMAZEPINE [Suspect]
     Active Substance: CARBAMAZEPINE
     Indication: Product used for unknown indication
  2. TRANDOLAPRIL [Concomitant]
     Active Substance: TRANDOLAPRIL
     Indication: Hypertension
  3. ROSUVASTATIN [Concomitant]
     Active Substance: ROSUVASTATIN
     Indication: Dyslipidaemia
  4. CHARCOAL [Concomitant]
     Active Substance: ACTIVATED CHARCOAL
     Indication: Product used for unknown indication
  5. POLYETHYLENE GLYCOL [Concomitant]
     Active Substance: POLYETHYLENE GLYCOL
     Indication: Product used for unknown indication

REACTIONS (15)
  - Encephalopathy [Unknown]
  - Unresponsive to stimuli [Unknown]
  - Generalised tonic-clonic seizure [Recovered/Resolved]
  - Lactic acidosis [Unknown]
  - Condition aggravated [Unknown]
  - Oxygen saturation decreased [Recovered/Resolved]
  - Heart rate decreased [Recovered/Resolved]
  - Erythema [Recovered/Resolved]
  - Bruxism [Recovered/Resolved]
  - Suicide attempt [Unknown]
  - Respiratory rate increased [Recovered/Resolved]
  - Blood pressure decreased [Recovered/Resolved]
  - Coma scale abnormal [Unknown]
  - Toxicity to various agents [Unknown]
  - Overdose [Unknown]
